FAERS Safety Report 12596032 (Version 1)
Quarter: 2016Q3

REPORT INFORMATION
  Report Type: Report from Study
  Country: US (occurrence: US)
  Receive Date: 20160726
  Receipt Date: 20160726
  Transmission Date: 20161109
  Serious: No
  Sender: FDA-Public Use
  Company Number: US-AMGEN-USASL2016064568

PATIENT
  Age: 60 Year
  Sex: Male

DRUGS (1)
  1. KYPROLIS [Suspect]
     Active Substance: CARFILZOMIB
     Indication: PLASMA CELL MYELOMA
     Dosage: 55 MG, 2 TIMES/WK
     Route: 065

REACTIONS (4)
  - Pruritus [Unknown]
  - Wheelchair user [Unknown]
  - Hyperkeratosis [Unknown]
  - Blister [Unknown]
